FAERS Safety Report 21352859 (Version 1)
Quarter: 2022Q3

REPORT INFORMATION
  Report Type: Spontaneous
  Country: US (occurrence: US)
  Receive Date: 20220920
  Receipt Date: 20220920
  Transmission Date: 20221027
  Serious: Yes (Hospitalization)
  Sender: FDA-Public Use
  Company Number: US-BRISTOL-MYERS SQUIBB COMPANY-2022-107348

PATIENT
  Age: 64 Year
  Sex: Female
  Weight: 78.93 kg

DRUGS (1)
  1. REVLIMID [Suspect]
     Active Substance: LENALIDOMIDE
     Indication: Plasma cell myeloma
     Dosage: DAILY DAYS 1-28 DAYS
     Route: 048
     Dates: start: 20211207

REACTIONS (1)
  - Adverse event [Not Recovered/Not Resolved]
